FAERS Safety Report 9890857 (Version 1)
Quarter: 2014Q1

REPORT INFORMATION
  Report Type: Spontaneous
  Country: US (occurrence: US)
  Receive Date: 20140212
  Receipt Date: 20140212
  Transmission Date: 20141002
  Serious: Yes (Hospitalization, Other)
  Sender: FDA-Public Use
  Company Number: US-NOVOPROD-399619

PATIENT
  Age: 61 Year
  Sex: Male
  Weight: 100.23 kg

DRUGS (1)
  1. VICTOZA [Suspect]
     Indication: TYPE 2 DIABETES MELLITUS
     Dosage: 1.8 MG, QD
     Route: 058
     Dates: start: 201306, end: 20140116

REACTIONS (2)
  - Pancreatic mass [Not Recovered/Not Resolved]
  - Pancreatitis [Recovered/Resolved]
